FAERS Safety Report 8423834-5 (Version None)
Quarter: 2012Q2

REPORT INFORMATION
  Report Type: 
  Country: None (occurrence: None)
  Receive Date: 20120608
  Receipt Date: 20111213
  Transmission Date: 20120825
  Serious: No
  Sender: FDA-Public Use
  Company Number: US-ASTRAZENECA-2010SE25495

PATIENT
  Age: 82 Year
  Sex: Female

DRUGS (6)
  1. ATACAND HCT [Suspect]
     Route: 048
  2. CRESTOR [Suspect]
     Route: 048
  3. ATACAND [Suspect]
     Route: 048
  4. GLIPIZIDE [Concomitant]
  5. DARVOCET [Concomitant]
  6. METFORMIN HYDROCHLORIDE [Concomitant]

REACTIONS (5)
  - HEADACHE [None]
  - INFLUENZA [None]
  - FALL [None]
  - NAUSEA [None]
  - MALAISE [None]
